FAERS Safety Report 18189881 (Version 2)
Quarter: 2021Q3

REPORT INFORMATION
  Report Type: Spontaneous
  Country: US (occurrence: US)
  Receive Date: 20200825
  Receipt Date: 20210920
  Transmission Date: 20211014
  Serious: No
  Sender: FDA-Public Use
  Company Number: US-CELLTRION INC.-2020US023452

PATIENT

DRUGS (1)
  1. INFLECTRA [Suspect]
     Active Substance: INFLIXIMAB-DYYB
     Indication: PRODUCT USE IN UNAPPROVED INDICATION
     Dosage: 100 MG
     Route: 065
     Dates: start: 20200716

REACTIONS (2)
  - Laboratory test abnormal [Unknown]
  - Tuberculin test [Unknown]
